FAERS Safety Report 5120477-6 (Version None)
Quarter: 2006Q4

REPORT INFORMATION
  Report Type: 
  Country: None (occurrence: None)
  Receive Date: 20061002
  Receipt Date: 20060913
  Transmission Date: 20070319
  Serious: Yes (Hospitalization)
  Sender: FDA-Public Use
  Company Number: HK200608006434

PATIENT
  Age: 30 Year
  Sex: Female

DRUGS (4)
  1. CYMBALTA [Suspect]
     Indication: AFFECTIVE DISORDER
     Dosage: SEE IMAGE
     Dates: start: 20060525, end: 20060605
  2. CYMBALTA [Suspect]
     Indication: AFFECTIVE DISORDER
     Dosage: SEE IMAGE
     Dates: start: 20060605, end: 20060612
  3. VALIUM [Concomitant]
  4. PANTOPRAZOLE SODIUM [Concomitant]

REACTIONS (1)
  - HEPATITIS [None]
